FAERS Safety Report 8378828-5 (Version None)
Quarter: 2012Q2

REPORT INFORMATION
  Report Type: 
  Country: None (occurrence: None)
  Receive Date: 20120523
  Receipt Date: 20120514
  Transmission Date: 20120825
  Serious: No
  Sender: FDA-Public Use
  Company Number: US-BIOGENIDEC-2012BI016710

PATIENT
  Sex: Female

DRUGS (1)
  1. AVONEX [Suspect]
     Indication: MULTIPLE SCLEROSIS
     Route: 030
     Dates: start: 19970715, end: 19980715

REACTIONS (6)
  - HEMIPARESIS [None]
  - TENSION [None]
  - DYSSTASIA [None]
  - FALL [None]
  - GAIT DISTURBANCE [None]
  - DIZZINESS [None]
